FAERS Safety Report 10229036 (Version 1)
Quarter: 2014Q2

REPORT INFORMATION
  Report Type: Spontaneous
  Country: US (occurrence: US)
  Receive Date: 20140610
  Receipt Date: 20140610
  Transmission Date: 20141212
  Serious: Yes (Hospitalization, Other)
  Sender: FDA-Public Use
  Company Number: US-GILEAD-2014-0104960

PATIENT
  Sex: Male

DRUGS (19)
  1. LETAIRIS [Suspect]
     Indication: PULMONARY HYPERTENSION
     Dosage: 10 MG, QD
     Route: 065
     Dates: start: 20100316
  2. MYRBETRIQ [Concomitant]
  3. NORVASC [Concomitant]
  4. EFFIENT [Concomitant]
  5. ZAROXOLYN [Concomitant]
  6. ALDACTONE                          /00006201/ [Concomitant]
  7. NOVOLOG [Concomitant]
  8. SYMLIN [Concomitant]
  9. IMDUR [Concomitant]
  10. INSPRA                             /01613601/ [Concomitant]
  11. TOPROL [Concomitant]
  12. LYRICA [Concomitant]
  13. MYSOLINE [Concomitant]
  14. LIBRIUM                            /00011501/ [Concomitant]
  15. ALLEGRA [Concomitant]
  16. ACIPHEX [Concomitant]
  17. PROCARDIA                          /00340701/ [Concomitant]
  18. CRESTOR [Concomitant]
  19. MULTIVITAMIN                       /07504101/ [Concomitant]

REACTIONS (3)
  - Fall [Unknown]
  - Abasia [Unknown]
  - Cardiac failure [Unknown]
